FAERS Safety Report 6066022-2 (Version None)
Quarter: 2009Q1

REPORT INFORMATION
  Report Type: 
  Country: None (occurrence: None)
  Receive Date: 20090205
  Receipt Date: 20090127
  Transmission Date: 20090719
  Serious: Yes (Other)
  Sender: FDA-Public Use
  Company Number: BR-PFIZER INC-2009163516

PATIENT

DRUGS (3)
  1. DEPO-PROVERA [Suspect]
     Indication: CONTRACEPTION
     Dosage: 150 MG, EVERY 3 MONTHS
     Dates: start: 20081208
  2. RISPERIDONE [Concomitant]
     Indication: DEPRESSION
     Dosage: 1 MG, UNK
     Dates: start: 20030101
  3. RISPERIDONE [Concomitant]
     Indication: ANXIETY

REACTIONS (3)
  - BLOOD URINE PRESENT [None]
  - PELVIC PAIN [None]
  - WEIGHT INCREASED [None]
